FAERS Safety Report 9370726 (Version 1)
Quarter: 2013Q2

REPORT INFORMATION
  Report Type: Spontaneous
  Country: BR (occurrence: BR)
  Receive Date: 20130626
  Receipt Date: 20130626
  Transmission Date: 20140414
  Serious: Yes (Hospitalization)
  Sender: FDA-Public Use
  Company Number: BR-B.I. PHARMACEUTICALS,INC./RIDGEFIELD-2013-BR-00637BR

PATIENT
  Age: 85 Year
  Sex: Male

DRUGS (4)
  1. PRADAXA [Suspect]
     Indication: ANTICOAGULANT THERAPY
     Dosage: 220 MG
     Route: 048
     Dates: start: 20130518, end: 20130521
  2. AMIODARONA [Concomitant]
     Indication: ARRHYTHMIA
  3. SELOZOK [Concomitant]
     Indication: CARDIAC DISORDER
  4. RAMIPRIL [Concomitant]
     Indication: HYPERTENSION

REACTIONS (2)
  - Heart rate decreased [Recovered/Resolved]
  - Abdominal pain [Recovered/Resolved]
